FAERS Safety Report 11838708 (Version 1)
Quarter: 2015Q4

REPORT INFORMATION
  Report Type: Spontaneous
  Country: US (occurrence: US)
  Receive Date: 20151215
  Receipt Date: 20151215
  Transmission Date: 20160305
  Serious: No
  Sender: FDA-Public Use
  Company Number: US-SA-2014SA168266

PATIENT
  Age: 50 Year
  Sex: Female

DRUGS (5)
  1. VENOFER [Concomitant]
     Active Substance: IRON SUCROSE
     Dosage: 200 MG (OF 20 MG/ML) INTRAVENOUS ONCE OVER 30 MINUTES NS 50 ML; ON 25-NOV-2014 AT 11:25
     Route: 042
     Dates: start: 20141120, end: 20141125
  2. ERGOCALCIFEROL. [Concomitant]
     Active Substance: ERGOCALCIFEROL
     Route: 048
  3. FERRLECIT [Suspect]
     Active Substance: SODIUM FERRIC GLUCONATE COMPLEX
     Indication: ANAEMIA
     Dosage: FREQUENCY:9 WEEK
     Route: 042
     Dates: start: 20140520, end: 20141117
  4. FERRIC SODIUM GLUCONATE COMPLEX [Concomitant]
     Dosage: ONCE OVER 1 HOURS IN NS?100 ML(1); 25-NOV-2014 AT 15:13
     Route: 042
     Dates: start: 20140520, end: 20141117
  5. SODIUM CHLORIDE. [Concomitant]
     Active Substance: SODIUM CHLORIDE
     Dosage: STRENGTH: 0.9%; SOLUTION; 25-NOV-2014 AT 11:20
     Route: 042
     Dates: start: 20140520, end: 20141125

REACTIONS (2)
  - Erythema [Recovered/Resolved]
  - Urticaria [Recovered/Resolved]

NARRATIVE: CASE EVENT DATE: 20141117
